FAERS Safety Report 8321137-0 (Version None)
Quarter: 2012Q1

REPORT INFORMATION
  Report Type: 
  Country: None (occurrence: None)
  Receive Date: 20120315
  Receipt Date: 20110208
  Transmission Date: 20120608
  Serious: No
  Sender: FDA-Public Use
  Company Number: PHHY2011US10341

PATIENT
  Age: 41 Year
  Sex: Female

DRUGS (1)
  1. GILENYA [Suspect]
     Dosage: ORAL
     Route: 048

REACTIONS (3)
  - SNEEZING [None]
  - COUGH [None]
  - HYPERSENSITIVITY [None]
